FAERS Safety Report 17791791 (Version 1)
Quarter: 2020Q2

REPORT INFORMATION
  Report Type: Spontaneous
  Country: CN (occurrence: CN)
  Receive Date: 20200515
  Receipt Date: 20200515
  Transmission Date: 20200714
  Serious: Yes (Other)
  Sender: FDA-Public Use
  Company Number: CN-ASTRAZENECA-2020SE62723

PATIENT
  Age: 28113 Day
  Sex: Male
  Weight: 63 kg

DRUGS (3)
  1. ESOMEPRAZOLE SODIUM. [Suspect]
     Active Substance: ESOMEPRAZOLE SODIUM
     Indication: GASTROINTESTINAL HAEMORRHAGE
     Route: 042
     Dates: start: 20200422, end: 20200422
  2. SODIUM CHLORIDE INJECTION [Concomitant]
     Active Substance: SODIUM CHLORIDE
     Dosage: 100ML, QD, IVGTT FOR SOLVENT
     Dates: start: 20200422, end: 20200422
  3. SODIUM CHLORIDE INJECTION [Concomitant]
     Active Substance: SODIUM CHLORIDE
     Dosage: 50ML, QD, PUMP INJECTION FOR SOLVENT
     Dates: start: 20200422, end: 20200422

REACTIONS (4)
  - Temperature intolerance [Recovering/Resolving]
  - Chills [Recovering/Resolving]
  - Dyspnoea [Recovering/Resolving]
  - Tachycardia [Recovering/Resolving]

NARRATIVE: CASE EVENT DATE: 20200422
